FAERS Safety Report 8383867-4 (Version None)
Quarter: 2012Q2

REPORT INFORMATION
  Report Type: 
  Country: None (occurrence: None)
  Receive Date: 20120524
  Receipt Date: 20120516
  Transmission Date: 20120825
  Serious: Yes (Hospitalization)
  Sender: FDA-Public Use
  Company Number: US-ACTELION-A-NJ2012-61716

PATIENT

DRUGS (18)
  1. COUMADIN [Concomitant]
  2. VANCOMYCIN [Concomitant]
  3. TRACLEER [Suspect]
     Indication: PULMONARY ARTERIAL HYPERTENSION
     Dosage: UNK
     Route: 048
     Dates: start: 20100616
  4. ASPIRIN [Concomitant]
  5. COLACE [Concomitant]
  6. PRILOSEC [Concomitant]
  7. SYNTHROID [Concomitant]
  8. BACTRIM [Concomitant]
  9. NORVASC [Concomitant]
  10. ZAROXOLYN [Concomitant]
  11. POTASSIUM CHLORIDE [Concomitant]
  12. LOPRESSOR [Concomitant]
  13. TORSEMIDE [Concomitant]
  14. ALLOPURINOL [Concomitant]
  15. NOVOLOG [Concomitant]
  16. APRESOLINE [Concomitant]
  17. COLCHICINE [Concomitant]
  18. OXYGEN [Concomitant]

REACTIONS (11)
  - RADICULITIS LUMBOSACRAL [None]
  - INTERVERTEBRAL DISCITIS [None]
  - LUMBAR SPINAL STENOSIS [None]
  - BACK PAIN [None]
  - STAPHYLOCOCCAL INFECTION [None]
  - RADICULITIS CERVICAL [None]
  - URINARY TRACT INFECTION [None]
  - GAIT DISTURBANCE [None]
  - FRACTURED SACRUM [None]
  - RENAL DISORDER [None]
  - FLUID RETENTION [None]
